FAERS Safety Report 13965591 (Version 1)
Quarter: 2017Q3

REPORT INFORMATION
  Report Type: Spontaneous
  Country: DE (occurrence: DE)
  Receive Date: 20170913
  Receipt Date: 20170913
  Transmission Date: 20171128
  Serious: Yes (Hospitalization, Other)
  Sender: FDA-Public Use
  Company Number: DE-INDIVIOR LIMITED-INDV-104604-2017

PATIENT
  Age: 24 Year
  Sex: Female
  Weight: 62 kg

DRUGS (4)
  1. NICOTINE. [Concomitant]
     Active Substance: NICOTINE
     Indication: PRODUCT USED FOR UNKNOWN INDICATION
     Dosage: 10 TO 12 CIGARETTES PER DAY, UNK
     Route: 065
     Dates: start: 20160707
  2. FOLIO                              /00349401/ [Concomitant]
     Active Substance: CYANOCOBALAMIN\FOLIC ACID
     Indication: PROPHYLAXIS OF NEURAL TUBE DEFECT
     Dosage: 0.4 MG, QD
     Route: 048
     Dates: start: 20160822
  3. VENLAFAXINE [Concomitant]
     Active Substance: VENLAFAXINE HYDROCHLORIDE
     Indication: DEPRESSION
     Dosage: 85 MG, QD
     Route: 048
     Dates: start: 20160707
  4. BUPRENORPHINE. [Suspect]
     Active Substance: BUPRENORPHINE
     Indication: DRUG USE DISORDER
     Dosage: 3 MG, QD
     Route: 048

REACTIONS (3)
  - Product use issue [Unknown]
  - Maternal exposure during pregnancy [Recovered/Resolved]
  - Foetal growth restriction [Recovered/Resolved]

NARRATIVE: CASE EVENT DATE: 20160707
